FAERS Safety Report 10032259 (Version 3)
Quarter: 2015Q1

REPORT INFORMATION
  Report Type: Report from Study
  Country: BG (occurrence: BG)
  Receive Date: 20140324
  Receipt Date: 20150325
  Transmission Date: 20150720
  Serious: Yes (Hospitalization)
  Sender: FDA-Public Use
  Company Number: BG-GLAXOSMITHKLINE-Z0022343A

PATIENT
  Age: 49 Year
  Sex: Female
  Weight: 48.6 kg

DRUGS (4)
  1. BELIMUMAB [Suspect]
     Active Substance: BELIMUMAB
     Indication: SYSTEMIC LUPUS ERYTHEMATOSUS
     Dosage: 10 MG/KG, CYC
     Route: 042
     Dates: start: 20130923
  2. PAROXETINE [Concomitant]
     Active Substance: PAROXETINE\PAROXETINE HYDROCHLORIDE
     Indication: DEPRESSION
     Route: 048
     Dates: start: 20131128
  3. SEROTIAPINE [Concomitant]
     Indication: DEPRESSION
     Route: 048
     Dates: start: 20131128
  4. OMEPRAZOL [Concomitant]
     Active Substance: OMEPRAZOLE
     Indication: PROPHYLAXIS
     Route: 048
     Dates: start: 20140318, end: 20140326

REACTIONS (1)
  - Lupus vasculitis [Not Recovered/Not Resolved]

NARRATIVE: CASE EVENT DATE: 20140217
